FAERS Safety Report 11179729 (Version 1)
Quarter: 2015Q2

REPORT INFORMATION
  Report Type: Spontaneous
  Country: US (occurrence: None)
  Receive Date: 20150609
  Receipt Date: 20150609
  Transmission Date: 20150821
  Serious: Yes (Other)
  Sender: FDA-Public Use
  Company Number: 001903190A

PATIENT
  Age: 44 Year
  Sex: Female

DRUGS (4)
  1. PROACTIV PLUS COMPLEXION PERFECTING HYDRATOR [Suspect]
     Active Substance: SALICYLIC ACID
     Indication: ACNE
     Dosage: DERMAL QD
     Dates: start: 20140505, end: 20150519
  2. PROACTIV PLUS MARK FADING [Suspect]
     Active Substance: GLYCOLIC ACID\SALICYLIC ACID
     Indication: ACNE
     Dosage: DERMAL QD
     Dates: start: 20140505, end: 20140519
  3. PROACTIVPLUS SKIN SMOOTHING EXFOLIATOR [Suspect]
     Active Substance: BENZOYL PEROXIDE
     Indication: ACNE
     Dosage: DERMAL QD
     Dates: start: 20140505, end: 20140519
  4. PROACTIV PLUS PORE TARGETING TREATMENT [Suspect]
     Active Substance: BENZOYL PEROXIDE
     Indication: ACNE
     Dosage: DERMAL QD
     Dates: start: 20140505, end: 20140519

REACTIONS (4)
  - Acne [None]
  - Dermatitis contact [None]
  - Seizure like phenomena [None]
  - Burning sensation [None]

NARRATIVE: CASE EVENT DATE: 20140519
